FAERS Safety Report 20013876 (Version 1)
Quarter: 2021Q4

REPORT INFORMATION
  Report Type: Spontaneous
  Country: US (occurrence: US)
  Receive Date: 20211029
  Receipt Date: 20211029
  Transmission Date: 20220303
  Serious: No
  Sender: FDA-Public Use
  Company Number: US-PFIZER INC-202101399811

PATIENT
  Age: 61 Year
  Sex: Female
  Weight: 65.32 kg

DRUGS (3)
  1. ESTRING [Suspect]
     Active Substance: ESTRADIOL
     Indication: Lichen sclerosus
     Dosage: UNK
  2. ESTRING [Suspect]
     Active Substance: ESTRADIOL
     Indication: Rash
  3. SYNTHROID [Concomitant]
     Active Substance: LEVOTHYROXINE SODIUM
     Indication: Thyroid disorder
     Dosage: UNK

REACTIONS (3)
  - Feeling abnormal [Unknown]
  - Off label use [Unknown]
  - Drug effective for unapproved indication [Unknown]
